FAERS Safety Report 18204972 (Version 2)
Quarter: 2020Q3

REPORT INFORMATION
  Report Type: Spontaneous
  Country: US (occurrence: US)
  Receive Date: 20200827
  Receipt Date: 20200911
  Transmission Date: 20201103
  Serious: No
  Sender: FDA-Public Use
  Company Number: US-ASTRAZENECA-2020SF05336

PATIENT
  Age: 14206 Day
  Sex: Male
  Weight: 117.9 kg

DRUGS (1)
  1. PULMICORT FLEXHALER [Suspect]
     Active Substance: BUDESONIDE
     Indication: COVID-19
     Dosage: 90 MCG 2 PUFFS TWO TIMES DAILY
     Route: 055
     Dates: start: 20200810

REACTIONS (4)
  - Off label use [Unknown]
  - Device delivery system issue [Unknown]
  - Intentional device misuse [Unknown]
  - Device malfunction [Unknown]

NARRATIVE: CASE EVENT DATE: 20200810
